FAERS Safety Report 9219835 (Version 1)
Quarter: 2013Q2

REPORT INFORMATION
  Report Type: Spontaneous
  Country: ID (occurrence: None)
  Receive Date: 20130408
  Receipt Date: 20130408
  Transmission Date: 20140414
  Serious: Yes (Other)
  Sender: FDA-Public Use
  Company Number: None

PATIENT
  Age: 50 Year
  Sex: Female
  Weight: 31.75 kg

DRUGS (1)
  1. RABEPRAZOLE [Suspect]

REACTIONS (8)
  - Discomfort [None]
  - Blood pressure increased [None]
  - Headache [None]
  - Chills [None]
  - Peripheral coldness [None]
  - Feeling abnormal [None]
  - Drug dose omission [None]
  - Heart rate abnormal [None]
